FAERS Safety Report 9642080 (Version 1)
Quarter: 2013Q4

REPORT INFORMATION
  Report Type: Report from Study
  Country: CA (occurrence: CA)
  Receive Date: 20131023
  Receipt Date: 20131023
  Transmission Date: 20140711
  Serious: Yes (Other)
  Sender: FDA-Public Use
  Company Number: CA-ABBVIE-13P-028-1160222-00

PATIENT
  Sex: Male
  Weight: 88.53 kg

DRUGS (4)
  1. HUMIRA [Suspect]
     Indication: ANKYLOSING SPONDYLITIS
     Route: 058
     Dates: start: 20100118, end: 201309
  2. HUMIRA [Suspect]
     Indication: CROHN^S DISEASE
     Route: 058
     Dates: start: 20131004
  3. EFFEXOR XR [Concomitant]
     Indication: DEPRESSION
     Route: 048
  4. VITAMIN B12 [Concomitant]
     Indication: VITAMIN B12 DEFICIENCY
     Route: 058
     Dates: start: 2000

REACTIONS (3)
  - Gastrointestinal obstruction [Recovered/Resolved]
  - Crohn^s disease [Not Recovered/Not Resolved]
  - Vitamin D decreased [Unknown]
